FAERS Safety Report 16005231 (Version 34)
Quarter: 2022Q4

REPORT INFORMATION
  Report Type: Spontaneous
  Country: US (occurrence: US)
  Receive Date: 20190226
  Receipt Date: 20221220
  Transmission Date: 20230113
  Serious: Yes (Other)
  Sender: FDA-Public Use
  Company Number: US-PFIZER INC-2019073145

PATIENT
  Sex: Female
  Weight: 81.65 kg

DRUGS (23)
  1. NEURONTIN [Suspect]
     Active Substance: GABAPENTIN
     Indication: Complex regional pain syndrome
     Dosage: 1200 MG, 3X/DAY ((TWO 600 MG TABLET, THREE TIMES A DAY)
     Route: 048
     Dates: start: 2001
  2. NEURONTIN [Suspect]
     Active Substance: GABAPENTIN
     Dosage: 1200 MG, 3X/DAY (TWO 600 MG TABLET, THREE TIMES A DAY)
     Route: 048
     Dates: start: 200309
  3. NEURONTIN [Suspect]
     Active Substance: GABAPENTIN
     Dosage: 800 MG
     Route: 065
  4. NEURONTIN [Suspect]
     Active Substance: GABAPENTIN
     Dosage: UNK
     Route: 065
  5. NEURONTIN [Suspect]
     Active Substance: GABAPENTIN
     Dosage: 1200 MG, 3X/DAY (TWO 600MG TABLETS EVERY EIGHT HOURS)
     Route: 048
  6. NEURONTIN [Suspect]
     Active Substance: GABAPENTIN
     Dosage: 1200 MG, 3X/DAY
     Route: 065
  7. NEURONTIN [Suspect]
     Active Substance: GABAPENTIN
     Dosage: 1200 MG, 3X/DAY(TWO 600 MG TABLETS)
     Route: 048
     Dates: start: 200309
  8. NEURONTIN [Suspect]
     Active Substance: GABAPENTIN
     Dosage: 600 MG, 3X/DAY
     Route: 048
     Dates: start: 2003
  9. NEURONTIN [Suspect]
     Active Substance: GABAPENTIN
     Dosage: 600 MG, 3X/DAY
     Route: 048
     Dates: start: 2003
  10. NEURONTIN [Suspect]
     Active Substance: GABAPENTIN
     Dosage: UNK
     Route: 065
  11. NEURONTIN [Suspect]
     Active Substance: GABAPENTIN
     Dosage: 600 MG, 3X/DAY
     Route: 048
     Dates: start: 2003
  12. NEURONTIN [Suspect]
     Active Substance: GABAPENTIN
     Dosage: 600 MG, 3X/DAY
     Route: 048
     Dates: start: 2003
  13. NEURONTIN [Suspect]
     Active Substance: GABAPENTIN
     Dosage: 600 MILLIGRAM
     Route: 048
  14. PROAIR HFA [Concomitant]
     Active Substance: ALBUTEROL SULFATE
     Indication: Asthma
     Dosage: 2 DF, AS NEEDED (2 PUFFS A DAY, AS NEEDED)
     Route: 055
  15. OXYCODONE [Concomitant]
     Active Substance: OXYCODONE
     Indication: Muscular dystrophy
     Dosage: 30 MG, DAILY
     Route: 065
  16. OXYCODONE [Concomitant]
     Active Substance: OXYCODONE
     Indication: Pain
     Dosage: 10 MG, 3X/DAY (EVERY 8 HOURS)
     Route: 065
     Dates: start: 2007
  17. OXYCODONE [Concomitant]
     Active Substance: OXYCODONE
     Indication: Complex regional pain syndrome
     Dosage: UNK
     Route: 065
  18. OXYCODONE [Concomitant]
     Active Substance: OXYCODONE
     Indication: Intervertebral disc protrusion
  19. OXYCONTIN [Concomitant]
     Active Substance: OXYCODONE HYDROCHLORIDE
     Indication: Muscular dystrophy
     Dosage: 20 MG, DAILY
     Route: 065
  20. OXYCONTIN [Concomitant]
     Active Substance: OXYCODONE HYDROCHLORIDE
     Indication: Complex regional pain syndrome
     Dosage: UNK, 2X/DAY (1 TAKEN EVERY 12 HOURS)
     Route: 065
     Dates: start: 2007
  21. OXYCONTIN [Concomitant]
     Active Substance: OXYCODONE HYDROCHLORIDE
     Indication: Intervertebral disc protrusion
     Dosage: 20 MG, 2X/DAY (EVERY 12 HOURS)
     Route: 065
  22. OXYCONTIN [Concomitant]
     Active Substance: OXYCODONE HYDROCHLORIDE
     Dosage: 10 MG, 3X/DAY
     Route: 048
  23. XTAMPZA ER [Concomitant]
     Active Substance: OXYCODONE
     Dosage: UNK
     Route: 065

REACTIONS (29)
  - COVID-19 [Recovering/Resolving]
  - Respiratory tract infection [Unknown]
  - Drug ineffective [Unknown]
  - Intentional dose omission [Unknown]
  - Wrong technique in product usage process [Unknown]
  - Intentional product misuse [Unknown]
  - Poor quality product administered [Unknown]
  - Product taste abnormal [Not Recovered/Not Resolved]
  - Product shape issue [Unknown]
  - Product quality issue [Unknown]
  - Oral discomfort [Unknown]
  - Throat irritation [Unknown]
  - Urinary tract infection [Unknown]
  - Hypoaesthesia [Not Recovered/Not Resolved]
  - Palpitations [Not Recovered/Not Resolved]
  - Fatigue [Not Recovered/Not Resolved]
  - Feeling abnormal [Not Recovered/Not Resolved]
  - Gait disturbance [Not Recovered/Not Resolved]
  - Coccydynia [Unknown]
  - Mobility decreased [Unknown]
  - Pain [Unknown]
  - Asthenia [Unknown]
  - Nervousness [Unknown]
  - Illness [Unknown]
  - Toxicity to various agents [Unknown]
  - Arthralgia [Unknown]
  - Burning feet syndrome [Unknown]
  - Myalgia [Unknown]
  - Tendon pain [Unknown]

NARRATIVE: CASE EVENT DATE: 20030101
